FAERS Safety Report 5610833-1 (Version None)
Quarter: 2008Q1

REPORT INFORMATION
  Report Type: 
  Country: None (occurrence: None)
  Receive Date: 20080128
  Receipt Date: 20080123
  Transmission Date: 20080703
  Serious: Yes (Other)
  Sender: FDA-Public Use
  Company Number: 2008SP001873

PATIENT
  Sex: Female

DRUGS (1)
  1. NASONEX [Suspect]
     Indication: SEASONAL ALLERGY
     Dosage: ;NAS
     Route: 045

REACTIONS (2)
  - NASAL SEPTUM PERFORATION [None]
  - PHARMACEUTICAL PRODUCT COMPLAINT [None]
